FAERS Safety Report 5597568-9 (Version None)
Quarter: 2008Q1

REPORT INFORMATION
  Report Type: 
  Country: None (occurrence: None)
  Receive Date: 20080121
  Receipt Date: 20080114
  Transmission Date: 20080703
  Serious: Yes (Other)
  Sender: FDA-Public Use
  Company Number: A0700763A

PATIENT
  Age: 62 Year
  Sex: Female
  Weight: 122.7 kg

DRUGS (17)
  1. LAMICTAL [Suspect]
     Indication: BIPOLAR DISORDER
     Dosage: 50MG PER DAY
     Route: 048
     Dates: start: 20071101
  2. LANTUS [Concomitant]
  3. APIDRA [Concomitant]
  4. PLAVIX [Concomitant]
  5. NORVASC [Concomitant]
  6. ATENOLOL [Concomitant]
  7. LIPITOR [Concomitant]
  8. ZETIA [Concomitant]
  9. XANAX [Concomitant]
  10. RISPERDAL [Concomitant]
  11. ZOLOFT [Concomitant]
  12. NITROGLYCERIN [Concomitant]
     Route: 062
  13. LASIX [Concomitant]
  14. NIASPAN [Concomitant]
  15. SLOW MAGNESIUM [Concomitant]
  16. MULTIVITAMIN WITH IRON [Concomitant]
  17. LASER TREATMENT [Concomitant]
     Indication: DIABETIC RETINOPATHY

REACTIONS (11)
  - ANGINA UNSTABLE [None]
  - BACK PAIN [None]
  - BIPOLAR DISORDER [None]
  - BURNING SENSATION [None]
  - EMOTIONAL DISTRESS [None]
  - ERYTHEMA [None]
  - HERPES ZOSTER [None]
  - PAIN [None]
  - POST HERPETIC NEURALGIA [None]
  - RASH VESICULAR [None]
  - STRESS [None]
